FAERS Safety Report 9678764 (Version 1)
Quarter: 2013Q4

REPORT INFORMATION
  Report Type: Spontaneous
  Country: CH (occurrence: None)
  Receive Date: 20131107
  Receipt Date: 20131107
  Transmission Date: 20140711
  Serious: Yes (Death)
  Sender: FDA-Public Use
  Company Number: 2013CP000124

PATIENT
  Age: 82 Year
  Sex: Female

DRUGS (10)
  1. PERFALGAN [Suspect]
     Indication: PAIN
     Route: 041
     Dates: start: 20130806, end: 20130808
  2. THIOPENTAL SODIUM [Suspect]
     Indication: ANAESTHESIA
     Dosage: 325 MG, IVD
     Route: 041
     Dates: start: 20130806, end: 20130806
  3. ISOFLURANE [Suspect]
     Indication: ANAESTHESIA
     Route: 055
     Dates: start: 20130806, end: 20130806
  4. DIPYRONE [Suspect]
     Indication: PAIN
     Route: 040
     Dates: start: 20130806, end: 20130808
  5. FRAGMIN (DALTEPARIN SODIUM) SOLUTION FOR INJECTION [Suspect]
     Indication: PROPHYLAXIS
     Dosage: 2500 IU; IVB
     Route: 040
     Dates: start: 20130807, end: 20130807
  6. FENTANYL CITRATE [Concomitant]
  7. METHADONE HCL [Concomitant]
  8. REMIFENTANIL HYDROCHLORIDE [Concomitant]
  9. ATRACURIUM BESYLATE [Concomitant]
  10. CALCIUM + VITAMIN D [Concomitant]

REACTIONS (5)
  - Pulmonary embolism [None]
  - Thrombocytopenia [None]
  - Haemorrhage [None]
  - Coagulopathy [None]
  - Hepatorenal failure [None]
